FAERS Safety Report 8289292-9 (Version None)
Quarter: 2012Q2

REPORT INFORMATION
  Report Type: 
  Country: None (occurrence: None)
  Receive Date: 20120417
  Receipt Date: 20120412
  Transmission Date: 20120825
  Serious: Yes (Hospitalization, Other)
  Sender: FDA-Public Use
  Company Number: PHHY2012JP031664

PATIENT
  Age: 57 Year
  Sex: Female

DRUGS (2)
  1. CLOZARIL [Suspect]
     Indication: SCHIZOPHRENIA
     Dosage: 125 MG DAILY
     Route: 048
     Dates: start: 20120328, end: 20120412
  2. FLOMOX [Suspect]
     Dosage: UNK UKN, UNK
     Route: 048
     Dates: start: 20120409

REACTIONS (8)
  - PYREXIA [None]
  - NEUROLEPTIC MALIGNANT SYNDROME [None]
  - DIARRHOEA [None]
  - BLOOD PRESSURE DECREASED [None]
  - GENERALISED OEDEMA [None]
  - PLEURAL EFFUSION [None]
  - RENAL FAILURE ACUTE [None]
  - CARDIAC FAILURE ACUTE [None]
